FAERS Safety Report 9292850 (Version 4)
Quarter: 2013Q3

REPORT INFORMATION
  Report Type: Report from Study
  Country: HK (occurrence: HK)
  Receive Date: 20130516
  Receipt Date: 20130806
  Transmission Date: 20140515
  Serious: Yes (Other)
  Sender: FDA-Public Use
  Company Number: HK-BAYER-2013-059859

PATIENT
  Age: 40 Year
  Sex: Female
  Weight: 51.1 kg

DRUGS (1)
  1. DIENOGEST 0/2/3/0MG + ESTRADIOL VALERATE 3/2/2/1MG [Suspect]
     Indication: CONTRACEPTION
     Dosage: UNK
     Route: 048
     Dates: start: 20130227, end: 20130512

REACTIONS (1)
  - Hypoaesthesia [Recovered/Resolved]
